FAERS Safety Report 10886083 (Version 1)
Quarter: 2015Q1

REPORT INFORMATION
  Report Type: Report from Study
  Country: IN (occurrence: IN)
  Receive Date: 20150304
  Receipt Date: 20150304
  Transmission Date: 20150721
  Serious: Yes (Death)
  Sender: FDA-Public Use
  Company Number: IN-INCYTE CORPORATION-2015IN000693

PATIENT
  Age: 49 Year
  Sex: Male

DRUGS (1)
  1. JAKAFI [Suspect]
     Active Substance: RUXOLITINIB
     Indication: MYELOFIBROSIS
     Dosage: 15 MG, UNK
     Route: 048
     Dates: start: 20140520

REACTIONS (1)
  - Death [Fatal]

NARRATIVE: CASE EVENT DATE: 20150128
